FAERS Safety Report 24187882 (Version 3)
Quarter: 2024Q4

REPORT INFORMATION
  Report Type: Spontaneous
  Country: JP (occurrence: JP)
  Receive Date: 20240808
  Receipt Date: 20241004
  Transmission Date: 20250115
  Serious: Yes (Hospitalization, Other)
  Sender: UNITED THERAPEUTICS
  Company Number: JP-UNITED THERAPEUTICS-UNT-2024-023890

PATIENT
  Age: 4 Year
  Sex: Female

DRUGS (19)
  1. UNITUXIN [Suspect]
     Active Substance: DINUTUXIMAB
     Indication: Neuroblastoma
     Dosage: 10.5 MG, CYCLICAL (CYCLE 1)
     Route: 041
     Dates: start: 20240603, end: 20240606
  2. UNITUXIN [Suspect]
     Active Substance: DINUTUXIMAB
     Dosage: 10.5 MG, CYCLICAL (CYCLE 2)
     Route: 041
     Dates: start: 20240709, end: 20240712
  3. TECELEUKIN [Suspect]
     Active Substance: TECELEUKIN
     Indication: Neuroblastoma
     Dosage: 595000 IU, CYCLICAL
     Dates: start: 20240709, end: 20240712
  4. FILGRASTIM [Suspect]
     Active Substance: FILGRASTIM
     Indication: Neuroblastoma
     Dosage: 5 ?G/KG, QD
     Dates: end: 20240613
  5. HYDROXYZINE HYDROCHLORIDE [Concomitant]
     Active Substance: HYDROXYZINE HYDROCHLORIDE
     Indication: Product used for unknown indication
     Dosage: 60 MG, QD
     Dates: start: 20240603, end: 20240606
  6. HYDROXYZINE HYDROCHLORIDE [Concomitant]
     Active Substance: HYDROXYZINE HYDROCHLORIDE
     Dosage: 50.0 MG, QD
     Dates: start: 20240709, end: 20240712
  7. ACETAMINOPHEN [Concomitant]
     Active Substance: ACETAMINOPHEN
     Indication: Product used for unknown indication
     Dosage: 140 MG, QD
     Dates: start: 20240603, end: 20240606
  8. ACETAMINOPHEN [Concomitant]
     Active Substance: ACETAMINOPHEN
     Dosage: 520 MG, QD
     Dates: start: 20240709, end: 20240712
  9. FENTANYL [Concomitant]
     Active Substance: FENTANYL
     Indication: Product used for unknown indication
     Dosage: 0.86 ?G/KG, QH
     Dates: start: 20240603, end: 20240606
  10. FENTANYL [Concomitant]
     Active Substance: FENTANYL
     Dosage: 0.43 ?G/KG, QH
     Dates: start: 20240606, end: 20240607
  11. FENTANYL [Concomitant]
     Active Substance: FENTANYL
     Dosage: 0.92 ?G/KG, QH
     Dates: start: 20240709, end: 20240712
  12. FENTANYL [Concomitant]
     Active Substance: FENTANYL
     Dosage: 0.46 ?G/KG, QH
     Dates: start: 20240712, end: 20240713
  13. FUROSEMIDE [Concomitant]
     Active Substance: FUROSEMIDE
     Indication: Product used for unknown indication
     Dosage: 15 MG, QD
     Dates: start: 20240603, end: 20240607
  14. FUROSEMIDE [Concomitant]
     Active Substance: FUROSEMIDE
     Dosage: 10 MG, QD
     Dates: start: 20240608, end: 20240609
  15. FUROSEMIDE [Concomitant]
     Active Substance: FUROSEMIDE
     Dosage: 5 MG, QD
     Dates: start: 20240610, end: 20240610
  16. FUROSEMIDE [Concomitant]
     Active Substance: FUROSEMIDE
     Dosage: 8 MG, QD
     Dates: start: 20240709, end: 20240709
  17. FUROSEMIDE [Concomitant]
     Active Substance: FUROSEMIDE
     Dosage: 16 MG, QD
     Dates: start: 20240710, end: 20240710
  18. FUROSEMIDE [Concomitant]
     Active Substance: FUROSEMIDE
     Dosage: 20 MG, QD
     Dates: start: 20240711, end: 20240712
  19. FUROSEMIDE [Concomitant]
     Active Substance: FUROSEMIDE
     Dosage: 15 MG, QD
     Dates: start: 20240713, end: 20240713

REACTIONS (5)
  - Pericardial effusion [Recovered/Resolved]
  - Pulmonary oedema [Recovered/Resolved]
  - Pulmonary hypertension [Recovering/Resolving]
  - Capillary leak syndrome [Unknown]
  - Pleural effusion [Recovered/Resolved]

NARRATIVE: CASE EVENT DATE: 20240601
